FAERS Safety Report 8019536-X (Version None)
Quarter: 2012Q1

REPORT INFORMATION
  Report Type: 
  Country: None (occurrence: None)
  Receive Date: 20120103
  Receipt Date: 20111219
  Transmission Date: 20120608
  Serious: Yes (Hospitalization)
  Sender: FDA-Public Use
  Company Number: US-WATSON-2011-21999

PATIENT
  Sex: Female
  Weight: 73 kg

DRUGS (1)
  1. PROGESTERONE IN OIL INJ [Suspect]
     Indication: PREMATURE LABOUR
     Dosage: UNK
     Route: 030
     Dates: start: 20100901, end: 20101201

REACTIONS (10)
  - WOUND COMPLICATION [None]
  - ANAPHYLACTOID REACTION [None]
  - CHEST PAIN [None]
  - INJECTION SITE ABSCESS [None]
  - INJECTION SITE INFECTION [None]
  - OPEN WOUND [None]
  - PRURITUS [None]
  - HEART RATE INCREASED [None]
  - INJECTION SITE MASS [None]
  - HYPERAESTHESIA [None]
